FAERS Safety Report 8606436-7 (Version None)
Quarter: 2012Q3

REPORT INFORMATION
  Report Type: 
  Country: None (occurrence: None)
  Receive Date: 20120820
  Receipt Date: 20120813
  Transmission Date: 20120928
  Serious: No
  Sender: FDA-Public Use
  Company Number: US-PFIZER INC-2012198388

PATIENT
  Age: 56 Year
  Sex: Male
  Weight: 79.365 kg

DRUGS (1)
  1. LYRICA [Suspect]
     Indication: FIBROMYALGIA
     Dosage: 50 MG, 2X/DAY
     Route: 048
     Dates: start: 20120808

REACTIONS (9)
  - FLUSHING [None]
  - FATIGUE [None]
  - ASTHENIA [None]
  - PYREXIA [None]
  - MUSCULAR WEAKNESS [None]
  - AGITATION [None]
  - IRRITABILITY [None]
  - DRUG INEFFECTIVE [None]
  - ANXIETY [None]
